FAERS Safety Report 13366396 (Version 1)
Quarter: 2017Q1

REPORT INFORMATION
  Report Type: Report from Study
  Country: US (occurrence: US)
  Receive Date: 20170323
  Receipt Date: 20170323
  Transmission Date: 20170429
  Serious: Yes (Other)
  Sender: FDA-Public Use
  Company Number: US-BIOGEN-2017BI00377002

PATIENT
  Age: 57 Year
  Sex: Male

DRUGS (1)
  1. TECFIDERA [Suspect]
     Active Substance: DIMETHYL FUMARATE
     Indication: MULTIPLE SCLEROSIS
     Dosage: MAINTENANCE DOSE
     Route: 048
     Dates: start: 201612

REACTIONS (7)
  - Sensory disturbance [Unknown]
  - Fall [Recovered/Resolved]
  - Flushing [Recovered/Resolved]
  - Nuclear magnetic resonance imaging abnormal [Unknown]
  - Joint range of motion decreased [Not Recovered/Not Resolved]
  - Arthralgia [Not Recovered/Not Resolved]
  - Cartilage injury [Unknown]

NARRATIVE: CASE EVENT DATE: 201701
